FAERS Safety Report 21352321 (Version 1)
Quarter: 2022Q3

REPORT INFORMATION
  Report Type: Report from Study
  Country: ID (occurrence: None)
  Receive Date: 20220920
  Receipt Date: 20220920
  Transmission Date: 20221027
  Serious: Yes (Death)
  Sender: FDA-Public Use
  Company Number: 2022A320252

PATIENT
  Age: 11798 Day
  Sex: Female

DRUGS (4)
  1. FASLODEX [Suspect]
     Active Substance: FULVESTRANT
     Indication: Hormone receptor positive breast cancer
     Dosage: 3 TIMES
     Route: 030
     Dates: start: 20220712
  2. FASLODEX [Suspect]
     Active Substance: FULVESTRANT
     Indication: Breast cancer metastatic
     Dosage: 3 TIMES
     Route: 030
     Dates: start: 20220712
  3. FASLODEX [Suspect]
     Active Substance: FULVESTRANT
     Indication: Antioestrogen therapy
     Dosage: 3 TIMES
     Route: 030
     Dates: start: 20220712
  4. FASLODEX [Suspect]
     Active Substance: FULVESTRANT
     Indication: HER2 positive breast cancer
     Dosage: 3 TIMES
     Route: 030
     Dates: start: 20220712

REACTIONS (1)
  - Death [Fatal]

NARRATIVE: CASE EVENT DATE: 20220813
